FAERS Safety Report 14190629 (Version 8)
Quarter: 2019Q1

REPORT INFORMATION
  Report Type: Report from Study
  Country: GB (occurrence: GB)
  Receive Date: 20171115
  Receipt Date: 20190228
  Transmission Date: 20190417
  Serious: Yes (Hospitalization, Other)
  Sender: FDA-Public Use
  Company Number: GB-ROCHE-1649835

PATIENT
  Sex: Male

DRUGS (5)
  1. ESBRIET [Suspect]
     Active Substance: PIRFENIDONE
     Dosage: 3-2-2
     Route: 048
     Dates: start: 20150617
  2. MORPHINE [Concomitant]
     Active Substance: MORPHINE
     Route: 065
  3. ESBRIET [Suspect]
     Active Substance: PIRFENIDONE
     Route: 048
     Dates: start: 201511
  4. ESBRIET [Suspect]
     Active Substance: PIRFENIDONE
     Indication: IDIOPATHIC PULMONARY FIBROSIS
     Route: 048
  5. PARACETAMOL [Concomitant]
     Active Substance: ACETAMINOPHEN
     Route: 065

REACTIONS (41)
  - Cough [Unknown]
  - Loss of consciousness [Unknown]
  - Cardiac aneurysm [Unknown]
  - Ill-defined disorder [Recovering/Resolving]
  - Back pain [Unknown]
  - Fall [Unknown]
  - Haemoglobin decreased [Unknown]
  - Arrhythmia [Unknown]
  - Back injury [Unknown]
  - Malaise [Not Recovered/Not Resolved]
  - Spinal compression fracture [Unknown]
  - Contusion [Recovering/Resolving]
  - Dyspnoea [Unknown]
  - Myelodysplastic syndrome [Unknown]
  - Pulmonary function test abnormal [Not Recovered/Not Resolved]
  - Psychiatric symptom [Unknown]
  - Hypotension [Unknown]
  - Head injury [Unknown]
  - Asthenia [Unknown]
  - Tooth extraction [Unknown]
  - Haemoglobin decreased [Not Recovered/Not Resolved]
  - Poor quality sleep [Recovering/Resolving]
  - Lower respiratory tract infection [Unknown]
  - Atrial fibrillation [Not Recovered/Not Resolved]
  - General physical health deterioration [Unknown]
  - Spinal fracture [Unknown]
  - Bladder irritation [Unknown]
  - Anaemia [Unknown]
  - Prostatic disorder [Unknown]
  - Loose tooth [Unknown]
  - Muscle atrophy [Unknown]
  - Rhinorrhoea [Unknown]
  - Weight decreased [Unknown]
  - Diarrhoea [Recovered/Resolved]
  - Dysuria [Unknown]
  - Fatigue [Unknown]
  - Cardiac disorder [Unknown]
  - Malaise [Unknown]
  - Constipation [Unknown]
  - Pain [Unknown]
  - General physical health deterioration [Not Recovered/Not Resolved]
